FAERS Safety Report 19690753 (Version 1)
Quarter: 2021Q3

REPORT INFORMATION
  Report Type: Spontaneous
  Country: US (occurrence: US)
  Receive Date: 20210812
  Receipt Date: 20210812
  Transmission Date: 20211014
  Serious: Yes (Death, Life-Threatening, Hospitalization)
  Sender: FDA-Public Use
  Company Number: None

PATIENT
  Age: 52 Year
  Sex: Female
  Weight: 63.3 kg

DRUGS (22)
  1. AMPICILLIN  1 G Q8H IV [Concomitant]
  2. INSULIN LISPRO 1?21 UNITS SQ [Concomitant]
  3. ACYCLOVIR 320 MG IV Q12H [Concomitant]
  4. DIGOXIN 0.5 MG IV 1 DOSE [Concomitant]
  5. VANCOMYCIN 1,000 MG IV DAILY [Concomitant]
  6. NOREPINEPHRINE 3 MCG/KG/MIN IV [Concomitant]
  7. CHLORHEXIDINE 0.12 % PO15 ML Q12H [Concomitant]
  8. EPINEPHRINE 0.05 MCG/KG/MIN IV [Concomitant]
  9. PANTOPRAZOLE 40 MG IV Q12H [Concomitant]
  10. FOLIC ACID 1 MG BID IV [Concomitant]
  11. PHENYLEPHRINE 9 MCG/KG/MIN IV [Concomitant]
  12. SODIUM BICARBONATE 25 MEQ/H IV [Concomitant]
  13. DILTIAZEM 5 MG/HR IV [Concomitant]
  14. PROPOFOL 10 MCG/KG/MIN IV [Concomitant]
  15. LACTULOSE 20 G TID [Concomitant]
  16. DEFIBROTIDE [Suspect]
     Active Substance: DEFIBROTIDE (BOVINE)
     Indication: VENOOCCLUSIVE LIVER DISEASE
     Dosage: ?          OTHER FREQUENCY:Q6H;?
     Route: 041
     Dates: start: 20210730, end: 20210806
  17. GLYCOPYRROLATE 0.2 MG IV DAILY [Concomitant]
  18. ZOSYN 25 ML/HR IV [Concomitant]
  19. VASOPRESSIN 0.04 UNITS/MIN IV [Concomitant]
  20. ACETYLCYSTEINE 6,620 MG 15.6 ML/HR IV BID [Concomitant]
  21. CALCIUM GLUCONATE 2 G IV PRN [Concomitant]
  22. FENTANYL 50 MCG IV PRN [Concomitant]

REACTIONS (15)
  - Respiratory failure [None]
  - Septic shock [None]
  - Pericardial effusion [None]
  - Haemodialysis [None]
  - Acute respiratory failure [None]
  - Transfusion [None]
  - Oliguria [None]
  - Lactic acidosis [None]
  - Culture urine positive [None]
  - Atrial fibrillation [None]
  - Condition aggravated [None]
  - Haemodynamic instability [None]
  - Enterococcal infection [None]
  - Thrombocytopenia [None]
  - Encephalopathy [None]

NARRATIVE: CASE EVENT DATE: 20210806
